FAERS Safety Report 8794147 (Version 4)
Quarter: 2012Q4

REPORT INFORMATION
  Report Type: 
  Country: US (occurrence: US)
  Receive Date: 20120918
  Receipt Date: 20121018
  Transmission Date: 20130627
  Serious: No
  Sender: FDA-Public Use
  Company Number: US-ASTRAZENECA-2012SE71689

PATIENT
  Age: 59 Year
  Sex: Female

DRUGS (3)
  1. NEXIUM [Suspect]
     Indication: OESOPHAGEAL IRRITATION
     Route: 048
  2. NEXIUM [Suspect]
     Indication: GASTROOESOPHAGEAL REFLUX DISEASE
     Route: 048
  3. NEXIUM [Suspect]
     Indication: HIATUS HERNIA
     Route: 048

REACTIONS (8)
  - Aphagia [Unknown]
  - Impaired gastric emptying [Unknown]
  - Weight increased [Unknown]
  - Gastric disorder [Unknown]
  - Malaise [Unknown]
  - Nausea [Unknown]
  - Off label use [Unknown]
  - Drug dose omission [Unknown]
